FAERS Safety Report 4648701-4 (Version None)
Quarter: 2005Q2

REPORT INFORMATION
  Report Type: 
  Country: None (occurrence: None)
  Receive Date: 20050427
  Receipt Date: 20050419
  Transmission Date: 20051028
  Serious: Yes (Other)
  Sender: FDA-Public Use
  Company Number: 200510206GDS

PATIENT
  Age: 75 Year
  Sex: Female
  Weight: 60 kg

DRUGS (8)
  1. ACTIMAX (MOXIFLOXACIN) [Suspect]
     Indication: BRONCHITIS
     Dosage: 400 MG, TOTAL DAILY, ORAL
     Route: 048
     Dates: start: 20041214, end: 20041219
  2. GLYCEROL NITRATE [Concomitant]
  3. SIMVASTATIN [Concomitant]
  4. MARCUMAR [Concomitant]
  5. ENALAPRIL MALEATE [Concomitant]
  6. AMIODARONE HCL [Concomitant]
  7. XIPAMID [Concomitant]
  8. ALLOPURINOL [Concomitant]

REACTIONS (1)
  - DIARRHOEA HAEMORRHAGIC [None]
